FAERS Safety Report 12263436 (Version 1)
Quarter: 2016Q2

REPORT INFORMATION
  Report Type: Spontaneous
  Country: US (occurrence: None)
  Receive Date: 20160412
  Receipt Date: 20160412
  Transmission Date: 20160815
  Serious: Yes (Other)
  Sender: FDA-Public Use
  Company Number: None

PATIENT
  Age: 49 Year
  Sex: Male
  Weight: 83.92 kg

DRUGS (18)
  1. A-HYDROCORT [Concomitant]
     Active Substance: HYDROCORTISONE SODIUM SUCCINATE
  2. SANCUSO [Suspect]
     Active Substance: GRANISETRON
     Indication: NAUSEA
     Dosage: 1 PATCH EVERY WEEK APPLIED AS MEDICATED PATCH TO SKIN
     Route: 062
  3. LINZESS [Concomitant]
     Active Substance: LINACLOTIDE
  4. WELLBUTRIN [Concomitant]
     Active Substance: BUPROPION HYDROCHLORIDE
  5. VITAMIN D [Concomitant]
     Active Substance: CHOLECALCIFEROL
  6. FREON [Concomitant]
     Active Substance: UNSPECIFIED INGREDIENT
  7. BETAINE [Concomitant]
     Active Substance: BETAINE
  8. LEVOTHYROXIN [Concomitant]
     Active Substance: LEVOTHYROXINE
  9. ACIDOPHILUS [Concomitant]
     Active Substance: LACTOBACILLUS ACIDOPHILUS
  10. AMITRIPTYLINE [Concomitant]
     Active Substance: AMITRIPTYLINE
  11. SIMVASTATIN. [Concomitant]
     Active Substance: SIMVASTATIN
  12. MIDODRINE [Concomitant]
     Active Substance: MIDODRINE
  13. MIRALAX [Concomitant]
     Active Substance: POLYETHYLENE GLYCOL 3350
  14. COREG [Concomitant]
     Active Substance: CARVEDILOL
  15. FENTANYL. [Concomitant]
     Active Substance: FENTANYL
  16. OXYBUTYNIN [Concomitant]
     Active Substance: OXYBUTYNIN
  17. CRANBERRY. [Concomitant]
     Active Substance: CRANBERRY
  18. APPLE CIDER VINEGAR [Concomitant]
     Active Substance: APPLE CIDER VINEGAR

REACTIONS (1)
  - Application site pruritus [None]

NARRATIVE: CASE EVENT DATE: 20110404
